FAERS Safety Report 18618446 (Version 1)
Quarter: 2020Q4

REPORT INFORMATION
  Report Type: Spontaneous
  Country: US (occurrence: US)
  Receive Date: 20201215
  Receipt Date: 20201215
  Transmission Date: 20210114
  Serious: Yes (Other)
  Sender: FDA-Public Use
  Company Number: US-009507513-2012USA005797

PATIENT
  Sex: Female

DRUGS (2)
  1. FOSAMAX [Suspect]
     Active Substance: ALENDRONATE SODIUM
     Dosage: UNK
     Dates: start: 2001, end: 201103
  2. FOSAMAX [Suspect]
     Active Substance: ALENDRONATE SODIUM
     Indication: OSTEOPOROSIS
     Dosage: UNK
     Dates: start: 2001, end: 201103

REACTIONS (5)
  - Multiple injuries [Unknown]
  - Atypical femur fracture [Unknown]
  - Emotional distress [Unknown]
  - Bone disorder [Unknown]
  - Pain [Unknown]

NARRATIVE: CASE EVENT DATE: 20110324
